FAERS Safety Report 15136397 (Version 1)
Quarter: 2020Q3

REPORT INFORMATION
  Report Type: Report from Study
  Country: CA (occurrence: CA)
  Receive Date: 20180712
  Receipt Date: 20180712
  Transmission Date: 20201104
  Serious: Yes (Hospitalization)
  Sender: FDA-Public Use
  Company Number: CA-ASTRAZENECA-2018SE82660

PATIENT
  Age: 76 Year
  Sex: Male

DRUGS (14)
  1. NORMAL SALINE [Concomitant]
     Active Substance: SODIUM CHLORIDE
  2. DIPHENHYDRAMINE. [Concomitant]
     Active Substance: DIPHENHYDRAMINE
  3. VANCOMYCIN [Concomitant]
     Active Substance: VANCOMYCIN
  4. POTASSIUM CHLORIDE. [Concomitant]
     Active Substance: POTASSIUM CHLORIDE
  5. TREMELIMUMAB. [Suspect]
     Active Substance: TREMELIMUMAB
     Indication: URINARY TRACT NEOPLASM
     Route: 042
     Dates: start: 20180613
  6. ZANTAC [Concomitant]
     Active Substance: RANITIDINE HYDROCHLORIDE
  7. GOSERELIN [Concomitant]
     Active Substance: GOSERELIN
  8. HYDROCHLOROTHIAZIDE. [Concomitant]
     Active Substance: HYDROCHLOROTHIAZIDE
  9. PREDNISONE. [Concomitant]
     Active Substance: PREDNISONE
  10. EZETIMIBE. [Concomitant]
     Active Substance: EZETIMIBE
  11. DURVALUMAB. [Suspect]
     Active Substance: DURVALUMAB
     Indication: URINARY TRACT NEOPLASM
     Route: 042
     Dates: start: 20180613
  12. TRIAMCINOLONE [Concomitant]
     Active Substance: TRIAMCINOLONE
  13. ENZALUTAMIDE [Concomitant]
     Active Substance: ENZALUTAMIDE
  14. ENOXAPARIN [Concomitant]
     Active Substance: ENOXAPARIN

REACTIONS (1)
  - Guillain-Barre syndrome [Recovered/Resolved]

NARRATIVE: CASE EVENT DATE: 20180625
